FAERS Safety Report 12081455 (Version 1)
Quarter: 2016Q1

REPORT INFORMATION
  Report Type: Spontaneous
  Country: US (occurrence: US)
  Receive Date: 20160216
  Receipt Date: 20160216
  Transmission Date: 20160526
  Serious: No
  Sender: FDA-Public Use
  Company Number: US-BAUSCH-BL-2015-021106

PATIENT
  Sex: Male

DRUGS (1)
  1. DILTIAZEM HCL ER CAPSULES [Suspect]
     Active Substance: DILTIAZEM HYDROCHLORIDE
     Indication: HYPERTENSION
     Route: 048

REACTIONS (8)
  - Headache [Unknown]
  - Dyspnoea [Unknown]
  - Paraesthesia [Unknown]
  - Drug ineffective [Unknown]
  - Hypoaesthesia [Unknown]
  - Muscle spasms [Unknown]
  - Blood pressure increased [Unknown]
  - Rash [Unknown]
